FAERS Safety Report 5139357-5 (Version None)
Quarter: 2006Q4

REPORT INFORMATION
  Report Type: 
  Country: None (occurrence: None)
  Receive Date: 20061024
  Receipt Date: 20061016
  Transmission Date: 20070319
  Serious: Yes (Hospitalization)
  Sender: FDA-Public Use
  Company Number: 230997

PATIENT
  Age: 63 Year
  Sex: Male
  Weight: 69.4 kg

DRUGS (9)
  1. AVASTIN [Suspect]
     Indication: METASTATIC NEOPLASM
     Dosage: 15 MG/KG, Q3W, INTRAVENOUS
     Route: 042
     Dates: start: 20060907
  2. ERLOTINIB (ERLOTINIB) TABLET, 100MG [Suspect]
     Indication: METASTATIC NEOPLASM
     Dosage: 150 MG, QD, ORAL
     Route: 048
     Dates: start: 20060907
  3. TAXOL [Suspect]
     Indication: METASTATIC NEOPLASM
     Dosage: 175 MG/M2, Q3W, INTRAVENOUS
     Route: 042
     Dates: start: 20060907
  4. CARBOPLATIN [Suspect]
     Indication: METASTATIC NEOPLASM
     Dosage: 6 AUC, Q3W, INTRAVENOUS
     Route: 042
     Dates: start: 20060907
  5. SERTRALINE HCL [Concomitant]
  6. ALTACE [Concomitant]
  7. LORAZEPAM [Concomitant]
  8. REGLAN [Concomitant]
  9. PROCHLORPERAZINE MALEATE [Concomitant]

REACTIONS (3)
  - HYPONATRAEMIA [None]
  - MENTAL STATUS CHANGES [None]
  - NEUTROPENIA [None]
